FAERS Safety Report 14934680 (Version 1)
Quarter: 2018Q2

REPORT INFORMATION
  Report Type: Spontaneous
  Country: US (occurrence: US)
  Receive Date: 20180505
  Receipt Date: 20180505
  Transmission Date: 20180711
  Serious: Yes (Hospitalization)
  Sender: FDA-Public Use
  Company Number: None

PATIENT
  Age: 51 Year
  Sex: Female
  Weight: 77.6 kg

DRUGS (1)
  1. PAZOPANIB (GW786034) [Suspect]
     Active Substance: PAZOPANIB
     Dates: end: 20180419

REACTIONS (3)
  - Abdominal distension [None]
  - Abdominal pain [None]
  - Disease progression [None]

NARRATIVE: CASE EVENT DATE: 20180428
